FAERS Safety Report 17595889 (Version 1)
Quarter: 2020Q1

REPORT INFORMATION
  Report Type: Other
  Country: DE (occurrence: DE)
  Receive Date: 20200329
  Receipt Date: 20200329
  Transmission Date: 20200409
  Serious: Yes (Death)
  Sender: FDA-Public Use
  Company Number: DE-DEXPHARM-20200274

PATIENT
  Age: 68 Year
  Sex: Male

DRUGS (14)
  1. AZATHIOPRINE. [Suspect]
     Active Substance: AZATHIOPRINE
  2. CLOPIDOGREL [Concomitant]
     Active Substance: CLOPIDOGREL BISULFATE
  3. ASPIRIN. [Concomitant]
     Active Substance: ASPIRIN
  4. CYCLOPHOSPHAMIDE. [Concomitant]
     Active Substance: CYCLOPHOSPHAMIDE
  5. DEXAMETHASONE. [Suspect]
     Active Substance: DEXAMETHASONE
  6. PREDNISONE. [Concomitant]
     Active Substance: PREDNISONE
  7. HYDROXYDAUNORUBICIN [Concomitant]
     Active Substance: DOXORUBICIN
  8. ONCOVIN [Concomitant]
     Active Substance: VINCRISTINE SULFATE
  9. CYTOSINE ARABINOSIDE [Suspect]
     Active Substance: CYTARABINE
  10. CICLOSPORIN [Interacting]
     Active Substance: CYCLOSPORINE
  11. RAPAMYCIN [Concomitant]
     Active Substance: SIROLIMUS
  12. VANCOMYCIN [Concomitant]
     Active Substance: VANCOMYCIN
  13. RITUXIMAB. [Suspect]
     Active Substance: RITUXIMAB
  14. CISPLATIN. [Suspect]
     Active Substance: CISPLATIN

REACTIONS (2)
  - Drug interaction [Unknown]
  - Pneumonia [Fatal]
